FAERS Safety Report 21220557 (Version 1)
Quarter: 2022Q3

REPORT INFORMATION
  Report Type: Spontaneous
  Country: US (occurrence: US)
  Receive Date: 20220817
  Receipt Date: 20220817
  Transmission Date: 20221027
  Serious: No
  Sender: FDA-Public Use
  Company Number: US-BRISTOL-MYERS SQUIBB COMPANY-2022-080552

PATIENT
  Age: 81 Year
  Sex: Male

DRUGS (1)
  1. ONUREG [Suspect]
     Active Substance: AZACITIDINE
     Indication: Product used for unknown indication
     Dosage: FREQ : TAKE 1 TABLET BY MOUTH EVERY DAY FOR 2 WEEKS ON, THEN 2 WEEKS OFF
     Route: 048

REACTIONS (3)
  - Illness [Unknown]
  - Nausea [Unknown]
  - Vomiting [Unknown]
